FAERS Safety Report 6308608-3 (Version None)
Quarter: 2009Q3

REPORT INFORMATION
  Report Type: 
  Country: None (occurrence: None)
  Receive Date: 20090811
  Receipt Date: 20080624
  Transmission Date: 20100115
  Serious: Yes (Other)
  Sender: FDA-Public Use
  Company Number: 002#1#2008-00523

PATIENT
  Sex: Male
  Weight: 81.8 kg

DRUGS (2)
  1. ALPROSTADIL [Suspect]
     Indication: ERECTILE DYSFUNCTION
     Dosage: SEE IMAGE
     Route: 017
     Dates: start: 20080501, end: 20080501
  2. ALPROSTADIL [Suspect]
     Indication: ERECTILE DYSFUNCTION
     Dosage: SEE IMAGE
     Route: 017
     Dates: start: 20080520, end: 20080520

REACTIONS (1)
  - PRIAPISM [None]
